FAERS Safety Report 9290514 (Version 1)
Quarter: 2013Q2

REPORT INFORMATION
  Report Type: Spontaneous
  Country: US (occurrence: US)
  Receive Date: 20130514
  Receipt Date: 20130514
  Transmission Date: 20140414
  Serious: Yes (Hospitalization)
  Sender: FDA-Public Use
  Company Number: US-BRACCO-008136

PATIENT
  Age: 62 Year
  Sex: Female

DRUGS (3)
  1. EFFEXOR [Concomitant]
  2. PROHANCE [Suspect]
     Indication: NUCLEAR MAGNETIC RESONANCE IMAGING
     Route: 042
     Dates: start: 20120529, end: 20120529
  3. PROHANCE [Suspect]
     Indication: DEAFNESS
     Route: 042
     Dates: start: 20120529, end: 20120529

REACTIONS (1)
  - Hypersensitivity [Recovered/Resolved]
